FAERS Safety Report 5005059-9 (Version None)
Quarter: 2006Q2

REPORT INFORMATION
  Report Type: 
  Country: None (occurrence: None)
  Receive Date: 20060516
  Receipt Date: 20060516
  Transmission Date: 20061013
  Serious: Yes (Hospitalization)
  Sender: FDA-Public Use
  Company Number: None

PATIENT
  Age: 76 Year
  Sex: Male

DRUGS (7)
  1. XELODA [Suspect]
     Indication: PANCREATIC CARCINOMA
     Dosage: 1500 MG/M2/DAY    DAYS 1-5 WK 2, 4    PO
     Route: 048
     Dates: start: 20060428, end: 20060507
  2. GEMZAR [Suspect]
     Indication: PANCREATIC CARCINOMA
     Dosage: 600 MG/M2    WK 2, 4        IV DRIP
     Route: 041
     Dates: start: 20060428, end: 20060503
  3. TAXOTERE [Suspect]
     Indication: PANCREATIC CARCINOMA
     Dosage: 40MG/M2    WK 1, 3    IV DRIP
     Route: 041
     Dates: start: 20060428, end: 20060503
  4. ENALAPRIL MALEATE [Concomitant]
  5. NOVOLOG [Concomitant]
  6. LANTIS [Concomitant]
  7. ASPIRIN [Concomitant]

REACTIONS (9)
  - ANAEMIA [None]
  - ANOREXIA [None]
  - DEHYDRATION [None]
  - DIARRHOEA [None]
  - DRUG TOXICITY [None]
  - HAEMATOCHEZIA [None]
  - NAUSEA [None]
  - PYREXIA [None]
  - VOMITING [None]
